FAERS Safety Report 7587524-3 (Version None)
Quarter: 2011Q3

REPORT INFORMATION
  Report Type: 
  Country: None (occurrence: None)
  Receive Date: 20110704
  Receipt Date: 20110620
  Transmission Date: 20111222
  Serious: Yes (Hospitalization)
  Sender: FDA-Public Use
  Company Number: US-ELI_LILLY_AND_COMPANY-US201009005058

PATIENT
  Sex: Female

DRUGS (19)
  1. ZANAFLEX [Concomitant]
  2. HYDROCODONE BITARTRATE [Concomitant]
  3. NASACORT [Concomitant]
  4. ZANTAC [Concomitant]
  5. CALCIUM CARBONATE [Concomitant]
  6. PRILOSEC [Concomitant]
  7. PAXIL [Concomitant]
  8. SPIRIVA [Concomitant]
  9. ALBUTEROL SULFATE AUTOHALER [Concomitant]
  10. FORTEO [Suspect]
     Dosage: 20 UG, DAILY (1/D)
     Dates: start: 20100930
  11. SYMBICORT [Concomitant]
  12. LORTAB [Concomitant]
  13. TRAMADOL HCL [Concomitant]
     Dosage: UNK, AS NEEDED
  14. SIMVASTATIN [Concomitant]
  15. FORTEO [Suspect]
     Indication: OSTEOPOROSIS
     Dosage: 20 UG, DAILY (1/D)
     Dates: start: 20100916, end: 20100920
  16. VITAMIN D [Concomitant]
  17. LYRICA [Concomitant]
  18. OXYGEN [Concomitant]
     Dosage: 2 LITERS,
  19. DILTIAZEM [Concomitant]

REACTIONS (28)
  - BRONCHITIS [None]
  - ARTHRALGIA [None]
  - FUNGAL INFECTION [None]
  - BACK PAIN [None]
  - CHRONIC OBSTRUCTIVE PULMONARY DISEASE [None]
  - FALL [None]
  - MOVEMENT DISORDER [None]
  - FAECES DISCOLOURED [None]
  - LACRIMATION INCREASED [None]
  - ADVERSE DRUG REACTION [None]
  - BONE PAIN [None]
  - LIMB INJURY [None]
  - MALAISE [None]
  - DIZZINESS [None]
  - DIARRHOEA [None]
  - GAIT DISTURBANCE [None]
  - HAEMORRHOIDS [None]
  - DYSPNOEA [None]
  - CONSTIPATION [None]
  - PNEUMONIA [None]
  - PAIN [None]
  - SPEECH DISORDER [None]
  - VITAMIN B12 DECREASED [None]
  - POLLAKIURIA [None]
  - ASTHENIA [None]
  - HYPERSENSITIVITY [None]
  - INJECTION SITE PAIN [None]
  - PAIN IN EXTREMITY [None]
